FAERS Safety Report 4902088-8 (Version None)
Quarter: 2006Q1

REPORT INFORMATION
  Report Type: 
  Country: None (occurrence: None)
  Receive Date: 20060206
  Receipt Date: 20060201
  Transmission Date: 20060701
  Serious: Yes (Other)
  Sender: FDA-Public Use
  Company Number: IE-GLAXOSMITHKLINE-B0408940A

PATIENT
  Age: 12 Year
  Sex: Male

DRUGS (1)
  1. ZINACEF [Suspect]
     Indication: DRUG USE FOR UNKNOWN INDICATION
     Dosage: 750U PER DAY
     Route: 042
     Dates: start: 20060113

REACTIONS (1)
  - SYNCOPE [None]
